FAERS Safety Report 9437125 (Version 3)
Quarter: 2013Q3

REPORT INFORMATION
  Report Type: Spontaneous
  Country: US (occurrence: US)
  Receive Date: 20130802
  Receipt Date: 20130930
  Transmission Date: 20140515
  Serious: Yes (Hospitalization, Other)
  Sender: FDA-Public Use
  Company Number: US-UCBSA-093205

PATIENT
  Age: 20 Year
  Sex: Female
  Weight: 56.36 kg

DRUGS (2)
  1. CIMZIA [Suspect]
     Indication: CROHN^S DISEASE
     Route: 058
     Dates: start: 20130225, end: 20130708
  2. LIADA [Concomitant]
     Indication: CROHN^S DISEASE
     Dosage: TOLD TO START WITH ONE AND INCREASE UP T 4
     Route: 048
     Dates: start: 201306, end: 201307

REACTIONS (9)
  - Psoriasis [Unknown]
  - Crohn^s disease [Recovered/Resolved]
  - Urticaria [Unknown]
  - Weight decreased [Not Recovered/Not Resolved]
  - Acne [Not Recovered/Not Resolved]
  - Furuncle [Unknown]
  - Haematochezia [Recovered/Resolved]
  - Pruritus [Not Recovered/Not Resolved]
  - Erythema [Not Recovered/Not Resolved]
